FAERS Safety Report 8014012-2 (Version None)
Quarter: 2011Q4

REPORT INFORMATION
  Report Type: 
  Country: None (occurrence: None)
  Receive Date: 20111229
  Receipt Date: 20091001
  Transmission Date: 20120403
  Serious: Yes (Other)
  Sender: FDA-Public Use
  Company Number: TH-ROCHE-1025996

PATIENT
  Sex: Male

DRUGS (3)
  1. OMALIZUMAB [Suspect]
     Indication: ASTHMA
     Dosage: INJECTIONS
  2. BRONCHODILATORS [Concomitant]
  3. STEROIDS NOS [Concomitant]
     Route: 048

REACTIONS (1)
  - ASTHMA [None]
